FAERS Safety Report 23239697 (Version 1)
Quarter: 2023Q4

REPORT INFORMATION
  Report Type: Spontaneous
  Country: US (occurrence: US)
  Receive Date: 20231129
  Receipt Date: 20231129
  Transmission Date: 20240109
  Serious: Yes (Other)
  Sender: FDA-Public Use
  Company Number: US-PFIZER INC-PV202300190158

PATIENT
  Age: 70 Year
  Sex: Female

DRUGS (3)
  1. HEPARIN SODIUM [Suspect]
     Active Substance: HEPARIN SODIUM
     Indication: Thrombosis prophylaxis
     Dosage: HEPARIN WAS INITIATED PRIOR TO THE PROCEDURE AND WAS CONTINUED THE NEXT MORNING
  2. WARFARIN [Suspect]
     Active Substance: WARFARIN
     Indication: Thrombosis prophylaxis
     Dosage: PRIOR TO THE PROCEDURE, THE WARFARIN WAS STOPPED
  3. WARFARIN [Suspect]
     Active Substance: WARFARIN
     Dosage: WARFARIN WAS RE-INITIATED THE NEXT MORNING

REACTIONS (2)
  - Sciatic nerve palsy [Recovered/Resolved]
  - Post procedural haematoma [Recovered/Resolved]
